FAERS Safety Report 5391915-9 (Version None)
Quarter: 2007Q3

REPORT INFORMATION
  Report Type: 
  Country: None (occurrence: None)
  Receive Date: 20070720
  Receipt Date: 20070710
  Transmission Date: 20080115
  Serious: Yes (Hospitalization, Other)
  Sender: FDA-Public Use
  Company Number: SE-JNJFOC-20070703555

PATIENT
  Age: 61 Year
  Sex: Female

DRUGS (5)
  1. REMICADE [Suspect]
     Indication: PSORIATIC ARTHROPATHY
  2. HUMIRA [Concomitant]
  3. METHOTREXATE [Concomitant]
  4. FOLACIN [Concomitant]
  5. ORUDIS RETARD [Concomitant]

REACTIONS (5)
  - ABDOMINAL PAIN [None]
  - DRUG EFFECT DECREASED [None]
  - FOLLICLE CENTRE LYMPHOMA, FOLLICULAR GRADE I, II, III [None]
  - NON-HODGKIN'S LYMPHOMA UNSPECIFIED HISTOLOGY INDOLENT [None]
  - VOMITING [None]
